FAERS Safety Report 5938218-9 (Version None)
Quarter: 2008Q4

REPORT INFORMATION
  Report Type: 
  Country: None (occurrence: None)
  Receive Date: 20081031
  Receipt Date: 20081020
  Transmission Date: 20090506
  Serious: Yes (Death, Hospitalization, Other)
  Sender: FDA-Public Use
  Company Number: US-AMGEN-US314846

PATIENT
  Sex: Female
  Weight: 64 kg

DRUGS (26)
  1. EPOGEN [Suspect]
     Indication: DIALYSIS
     Route: 010
     Dates: start: 20040101
  2. EPOGEN [Suspect]
     Route: 058
  3. INSULIN [Concomitant]
  4. DIOVAN [Concomitant]
  5. MINOXIDIL [Concomitant]
  6. TOPROL-XL [Concomitant]
  7. LIPITOR [Concomitant]
  8. INSULIN LISPRO [Concomitant]
  9. LASIX [Concomitant]
  10. REGLAN [Concomitant]
  11. DOCUSATE [Concomitant]
  12. LANTUS [Concomitant]
  13. CELEXA [Concomitant]
  14. BLOOD CELLS, PACKED HUMAN [Concomitant]
  15. NEPHRO-CAPS [Concomitant]
  16. RENAGEL [Concomitant]
     Route: 048
  17. VICODIN [Concomitant]
  18. COMPAZINE [Concomitant]
  19. NEURONTIN [Concomitant]
     Route: 048
  20. MANNITOL [Concomitant]
  21. ALBUTEROL [Concomitant]
  22. ATROVENT [Concomitant]
  23. IMODIUM [Concomitant]
  24. MS CONTIN [Concomitant]
     Dates: start: 20040101
  25. DILAUDID [Concomitant]
  26. PROTONIX [Concomitant]

REACTIONS (9)
  - APPENDICECTOMY [None]
  - ARRHYTHMIA [None]
  - BACK PAIN [None]
  - CARDIAC ARREST [None]
  - CYTOMEGALOVIRUS ANTIBODY POSITIVE [None]
  - DIARRHOEA [None]
  - POST PROCEDURAL HAEMATOMA [None]
  - PYREXIA [None]
  - TYPE 1 DIABETES MELLITUS [None]
